FAERS Safety Report 13066098 (Version 1)
Quarter: 2016Q4

REPORT INFORMATION
  Report Type: Spontaneous
  Country: US (occurrence: US)
  Receive Date: 20161227
  Receipt Date: 20161227
  Transmission Date: 20170207
  Serious: No
  Sender: FDA-Public Use
  Company Number: US-TAKEDA-2016TUS023071

PATIENT
  Sex: Male

DRUGS (1)
  1. COLCRYS [Suspect]
     Active Substance: COLCHICINE
     Indication: CHONDROCALCINOSIS PYROPHOSPHATE
     Dosage: 0.6 MG, QD
     Route: 048

REACTIONS (5)
  - Dizziness [Not Recovered/Not Resolved]
  - Muscular weakness [Not Recovered/Not Resolved]
  - Gout [Not Recovered/Not Resolved]
  - Nausea [Not Recovered/Not Resolved]
  - Pain in extremity [Not Recovered/Not Resolved]

NARRATIVE: CASE EVENT DATE: 201610
